FAERS Safety Report 8144138-4 (Version None)
Quarter: 2012Q1

REPORT INFORMATION
  Report Type: 
  Country: None (occurrence: None)
  Receive Date: 20120214
  Receipt Date: 20120206
  Transmission Date: 20120608
  Serious: Yes (Other)
  Sender: FDA-Public Use
  Company Number: TPA2011A07179

PATIENT
  Age: 74 Year
  Sex: Male
  Weight: 83.9154 kg

DRUGS (11)
  1. CRESTOR(ROSUVASTATIN) (TABLETS) [Concomitant]
  2. ASA (ACETYLSALICYLIC ACID) (TABLETS) [Concomitant]
  3. TESTOSTERONE PROPIONATE (TESTOSTERONE PROPIONATE) (3 PERCENT) [Concomitant]
  4. TOPROL XL ER 24HR (METOPROLOL SUCCINATE) (TABLETS) [Concomitant]
  5. ACTOS [Suspect]
     Dosage: 15 MG, 1 IN 1 D, PER ORAL
     Route: 048
     Dates: start: 20070110, end: 20111028
  6. EFFIENT [Concomitant]
  7. LISINOPRIL [Concomitant]
  8. CARDIZEM CD ER 24HR (DILTIAZEM HYDROCHLORIDE) (CAPSULES) [Concomitant]
  9. PLAVIX [Concomitant]
  10. LIPITOR [Concomitant]
  11. VITAMIN D (ERGOCALCIFEROL) (CAPSULES) [Concomitant]

REACTIONS (1)
  - BLADDER TRANSITIONAL CELL CARCINOMA [None]
